FAERS Safety Report 11758390 (Version 8)
Quarter: 2016Q2

REPORT INFORMATION
  Report Type: Spontaneous
  Country: US (occurrence: US)
  Receive Date: 20151120
  Receipt Date: 20160401
  Transmission Date: 20160815
  Serious: Yes (Other)
  Sender: FDA-Public Use
  Company Number: US-PFIZER INC-2015360397

PATIENT
  Age: 80 Year
  Sex: Male
  Weight: 103 kg

DRUGS (9)
  1. FERROUS SULFATE. [Concomitant]
     Active Substance: FERROUS SULFATE
     Dosage: UNK
  2. PROTONIX [Concomitant]
     Active Substance: PANTOPRAZOLE SODIUM
     Dosage: UNK
  3. LISINOPRIL. [Concomitant]
     Active Substance: LISINOPRIL
     Dosage: UNK
  4. PRAVASTATIN [Concomitant]
     Active Substance: PRAVASTATIN\PRAVASTATIN SODIUM
     Dosage: UNK
  5. SUTENT [Suspect]
     Active Substance: SUNITINIB MALATE
     Indication: RENAL CELL CARCINOMA STAGE IV
     Dosage: 50 MG, CYCLIC (DAILY, 28 DAYS ON/14 DAYS OFF)
     Dates: start: 20151018, end: 20151119
  6. SUTENT [Suspect]
     Active Substance: SUNITINIB MALATE
     Dosage: 50 MG, DAILY
     Dates: start: 20151216, end: 201602
  7. FLEX PEN INSULIN [Concomitant]
     Indication: DIABETES MELLITUS
     Dosage: UNK
     Dates: end: 20160103
  8. METFORMIN [Concomitant]
     Active Substance: METFORMIN HYDROCHLORIDE
     Indication: BLOOD GLUCOSE FLUCTUATION
     Dosage: UNK
  9. TRADJENTA [Concomitant]
     Active Substance: LINAGLIPTIN
     Dosage: UNK
     Dates: end: 20160120

REACTIONS (20)
  - Constipation [Unknown]
  - Nasopharyngitis [Unknown]
  - Retching [Unknown]
  - White blood cell count increased [Unknown]
  - Incorrect drug administration duration [Unknown]
  - Rhinorrhoea [Unknown]
  - Systolic hypertension [Not Recovered/Not Resolved]
  - Weight increased [Recovered/Resolved]
  - Diarrhoea [Unknown]
  - Nausea [Unknown]
  - Dysgeusia [Unknown]
  - Blood glucose decreased [Recovered/Resolved]
  - Epistaxis [Unknown]
  - Pollakiuria [Recovered/Resolved]
  - Weight decreased [Unknown]
  - Blood iron decreased [Recovered/Resolved]
  - Dry mouth [Unknown]
  - Oral pain [Recovered/Resolved]
  - Blood count abnormal [Unknown]
  - Hypophagia [Unknown]
